FAERS Safety Report 20583160 (Version 1)
Quarter: 2022Q1

REPORT INFORMATION
  Report Type: Spontaneous
  Country: US (occurrence: US)
  Receive Date: 20220311
  Receipt Date: 20220311
  Transmission Date: 20220423
  Serious: Yes (Other)
  Sender: FDA-Public Use
  Company Number: US-PFIZER INC-202200353508

PATIENT
  Age: 78 Year
  Sex: Female

DRUGS (8)
  1. AMLODIPINE BESYLATE [Suspect]
     Active Substance: AMLODIPINE BESYLATE
     Dosage: UNK
  2. TIKOSYN [Suspect]
     Active Substance: DOFETILIDE
     Indication: Atrial fibrillation
     Dosage: 250 UG, 2X/DAY (250 MCG TOTAL (1 CAPSULE) BY MOUTH 2 (TWO) TIMES DAILY)
     Route: 048
  3. TIKOSYN [Suspect]
     Active Substance: DOFETILIDE
     Indication: Myocardial ischaemia
  4. DOFETILIDE [Suspect]
     Active Substance: DOFETILIDE
     Indication: Atrial fibrillation
     Dosage: 250 UG, 2X/DAY (250 MCG TOTAL (1 CAPSULE) BY MOUTH 2 (TWO) TIMES DAILY)
     Route: 048
  5. DOFETILIDE [Suspect]
     Active Substance: DOFETILIDE
     Indication: Myocardial ischaemia
  6. NITROSTAT [Suspect]
     Active Substance: NITROGLYCERIN
     Indication: Chest pain
     Dosage: 0.4 MG, AS NEEDED (.4 MG TOTAL (1 TABLET) UNDER TONGUE EVERY 5 (FIVE) MINUTES)
     Route: 060
  7. APIXABAN [Concomitant]
     Active Substance: APIXABAN
     Dosage: 5 MG, 2X/DAY (5 MG TOTAL (1 TABLET) BY MOUTH 2 (TWO) TIMES DAILY)
     Route: 048
  8. SPIRONOLACTONE [Concomitant]
     Active Substance: SPIRONOLACTONE
     Dosage: 25 MG, 1X/DAY (25 MG TOTAL (1 TABLET) BY MOUTH DAILY)
     Route: 048

REACTIONS (3)
  - Myocardial infarction [Unknown]
  - Nodal rhythm [Unknown]
  - Urinary tract infection bacterial [Unknown]
